FAERS Safety Report 24917605 (Version 1)
Quarter: 2025Q1

REPORT INFORMATION
  Report Type: Spontaneous
  Country: US (occurrence: US)
  Receive Date: 20250203
  Receipt Date: 20250203
  Transmission Date: 20250409
  Serious: No
  Sender: SANOFI AVENTIS
  Company Number: US-SANOFI-02386590

PATIENT
  Age: 46 Year
  Sex: Male
  Weight: 86.36 kg

DRUGS (6)
  1. DUPIXENT [Suspect]
     Active Substance: DUPILUMAB
     Indication: Essential hypertension
     Dosage: 300 MG, QW
     Route: 058
  2. LORATADINE [Concomitant]
     Active Substance: LORATADINE
  3. BACLOFEN [Concomitant]
     Active Substance: BACLOFEN
  4. MELOXICAM [Concomitant]
     Active Substance: MELOXICAM
  5. LISINOPRIL [Concomitant]
     Active Substance: LISINOPRIL
  6. ESOMEPRAZOLE MAGNESIUM [Concomitant]
     Active Substance: ESOMEPRAZOLE MAGNESIUM

REACTIONS (1)
  - Product use in unapproved indication [Unknown]
